FAERS Safety Report 25797015 (Version 4)
Quarter: 2025Q4

REPORT INFORMATION
  Report Type: Spontaneous
  Country: US (occurrence: US)
  Receive Date: 20250912
  Receipt Date: 20251015
  Transmission Date: 20260118
  Serious: No
  Sender: PFIZER
  Company Number: US-PFIZER INC-202500175433

PATIENT
  Age: 45 Year
  Sex: Male

DRUGS (1)
  1. GENOTROPIN [Suspect]
     Active Substance: SOMATROPIN
     Dosage: 0.6 MG TUESDAY AND SATURDAY

REACTIONS (2)
  - Drug dose omission by device [Unknown]
  - Device leakage [Unknown]
